FAERS Safety Report 13609443 (Version 2)
Quarter: 2017Q2

REPORT INFORMATION
  Report Type: Spontaneous
  Country: US (occurrence: US)
  Receive Date: 20170602
  Receipt Date: 20170605
  Transmission Date: 20170830
  Serious: No
  Sender: FDA-Public Use
  Company Number: US-PFIZER INC-2925009

PATIENT
  Age: 35 Year
  Sex: Female
  Weight: 52.2 kg

DRUGS (3)
  1. KETOROLAC TROMETHAMINE. [Suspect]
     Active Substance: KETOROLAC TROMETHAMINE
     Indication: MIGRAINE
     Dosage: UNK
     Route: 030
     Dates: start: 20141201
  2. TOPAMAX [Concomitant]
     Active Substance: TOPIRAMATE
     Indication: MIGRAINE
     Dosage: 200 MG, FREQ: 2 DAY; INTERVAL:1
     Route: 048
     Dates: start: 20141001
  3. LEXAPRO [Concomitant]
     Active Substance: ESCITALOPRAM OXALATE
     Indication: DEPRESSION
     Dosage: 20 MG, QD; STARTED 1 1/2 YEARS AGO
     Route: 048

REACTIONS (5)
  - Myalgia [Recovering/Resolving]
  - Poor quality drug administered [Recovering/Resolving]
  - Product quality issue [Recovering/Resolving]
  - Enzyme level increased [Unknown]
  - Hypoaesthesia [Recovering/Resolving]

NARRATIVE: CASE EVENT DATE: 20141201
